FAERS Safety Report 24391808 (Version 1)
Quarter: 2024Q4

REPORT INFORMATION
  Report Type: Spontaneous
  Country: US (occurrence: None)
  Receive Date: 20241002
  Receipt Date: 20241002
  Transmission Date: 20250114
  Serious: Yes (Hospitalization)
  Sender: Public
  Company Number: None

PATIENT
  Sex: Female

DRUGS (3)
  1. SYNVISC-ONE [Suspect]
     Active Substance: HYLAN G-F 20
     Indication: Osteoarthritis
     Dosage: FREQUENCY : ONCE;?
     Route: 014
     Dates: start: 202406
  2. ENBREL [Suspect]
     Active Substance: ETANERCEPT
  3. ELIQUIS [Concomitant]
     Active Substance: APIXABAN

REACTIONS (2)
  - Atrial fibrillation [None]
  - Osteoarthritis [None]
